FAERS Safety Report 11355939 (Version 2)
Quarter: 2016Q1

REPORT INFORMATION
  Report Type: Report from Study
  Country: US (occurrence: US)
  Receive Date: 20150807
  Receipt Date: 20160107
  Transmission Date: 20160525
  Serious: No
  Sender: FDA-Public Use
  Company Number: US-ABBVIE-15P-163-1424433-00

PATIENT
  Age: 58 Year
  Sex: Male
  Weight: 74.91 kg

DRUGS (1)
  1. VIEKIRA PAK [Suspect]
     Active Substance: DASABUVIR\OMBITASVIR\PARITAPREVIR\RITONAVIR
     Indication: HEPATITIS C
     Route: 048
     Dates: start: 20150704

REACTIONS (2)
  - Pruritus [Unknown]
  - Somnolence [Unknown]

NARRATIVE: CASE EVENT DATE: 20150705
